FAERS Safety Report 25979785 (Version 1)
Quarter: 2025Q4

REPORT INFORMATION
  Report Type: Spontaneous
  Country: US (occurrence: None)
  Receive Date: 20251028
  Receipt Date: 20251028
  Transmission Date: 20260118
  Serious: Yes (Hospitalization)
  Sender: FDA-CTU
  Company Number: None

PATIENT
  Age: 76 Year
  Sex: Female

DRUGS (1)
  1. INGREZZA [Suspect]
     Active Substance: VALBENAZINE DITOSYLATE
     Indication: Malignant neoplasm of ampulla of Vater
     Dosage: FREQUENCY : DAILY;?
     Route: 048

REACTIONS (8)
  - Drug ineffective [None]
  - Therapy cessation [None]
  - Malaise [None]
  - Nausea [None]
  - Feeling abnormal [None]
  - Urinary tract infection [None]
  - Asthenia [None]
  - Walking aid user [None]

NARRATIVE: CASE EVENT DATE: 20251011
